FAERS Safety Report 7533500-6 (Version None)
Quarter: 2011Q2

REPORT INFORMATION
  Report Type: 
  Country: None (occurrence: None)
  Receive Date: 20110608
  Receipt Date: 20060110
  Transmission Date: 20111010
  Serious: Yes (Other)
  Sender: FDA-Public Use
  Company Number: PHFR2006GB00510

PATIENT
  Sex: Male
  Weight: 108 kg

DRUGS (1)
  1. CLOZAPINE [Suspect]
     Indication: SCHIZOPHRENIA
     Dosage: 650MG DAILY
     Route: 065
     Dates: start: 20041207

REACTIONS (6)
  - BLOOD PRESSURE SYSTOLIC INCREASED [None]
  - ALCOHOL USE [None]
  - TACHYCARDIA [None]
  - EXERCISE LACK OF [None]
  - BLOOD PRESSURE DIASTOLIC INCREASED [None]
  - WEIGHT INCREASED [None]
